FAERS Safety Report 9410054 (Version 4)
Quarter: 2013Q3

REPORT INFORMATION
  Report Type: Spontaneous
  Country: US (occurrence: None)
  Receive Date: 20130604
  Receipt Date: 20130815
  Transmission Date: 20140515
  Serious: Yes (Hospitalization, Other)
  Sender: FDA-Public Use
  Company Number: ADR-2010-8599

PATIENT
  Sex: Male

DRUGS (1)
  1. LIORESAL INTRATHECAL (BACLOFEN INJECTION) 2000 MCG/ML [Suspect]
     Indication: MUSCLE SPASTICITY

REACTIONS (12)
  - Pyrexia [None]
  - Device failure [None]
  - Drug withdrawal syndrome [None]
  - Device damage [None]
  - Heart rate increased [None]
  - Renal failure [None]
  - Medical device complication [None]
  - General physical health deterioration [None]
  - Hypophagia [None]
  - Muscle spasticity [None]
  - Clostridium difficile infection [None]
  - Device occlusion [None]
